FAERS Safety Report 6162706-6 (Version None)
Quarter: 2009Q2

REPORT INFORMATION
  Report Type: 
  Country: None (occurrence: None)
  Receive Date: 20090421
  Receipt Date: 20081009
  Transmission Date: 20091009
  Serious: No
  Sender: FDA-Public Use
  Company Number: US-ASTRAZENECA-2007UW01516

PATIENT
  Age: 69 Year
  Sex: Female
  Weight: 79.4 kg

DRUGS (4)
  1. TOPROL-XL [Suspect]
     Indication: HYPERTENSION
     Route: 048
     Dates: start: 20070120
  2. NEXIUM [Suspect]
     Route: 048
  3. ZESTRIL [Suspect]
     Route: 048
  4. HYDROCHLOROTHIAZIDE [Concomitant]

REACTIONS (6)
  - ABDOMINAL PAIN UPPER [None]
  - COUGH [None]
  - DIZZINESS [None]
  - ERUCTATION [None]
  - FLATULENCE [None]
  - INJECTION SITE REACTION [None]
